FAERS Safety Report 24410972 (Version 1)
Quarter: 2024Q4

REPORT INFORMATION
  Report Type: Spontaneous
  Country: ID (occurrence: ID)
  Receive Date: 20241008
  Receipt Date: 20241008
  Transmission Date: 20250115
  Serious: Yes (Life-Threatening, Hospitalization)
  Sender: MYLAN
  Company Number: ID-MYLANLABS-2024M1091315

PATIENT
  Age: 27 Year
  Sex: Female

DRUGS (22)
  1. PREGABALIN [Suspect]
     Active Substance: PREGABALIN
     Indication: Neuralgia
     Dosage: 75 MILLIGRAM, BID
     Route: 065
  2. PREGABALIN [Suspect]
     Active Substance: PREGABALIN
     Indication: Back pain
  3. CELECOXIB [Suspect]
     Active Substance: CELECOXIB
     Indication: Neuralgia
     Dosage: 100 MILLIGRAM, BID
     Route: 065
  4. CELECOXIB [Suspect]
     Active Substance: CELECOXIB
     Indication: Back pain
  5. DEXMEDETOMIDINE [Suspect]
     Active Substance: DEXMEDETOMIDINE
     Indication: Neuralgia
     Dosage: UNK, QH {UPON 0.8 ?G/KG}
     Route: 065
  6. DEXMEDETOMIDINE [Suspect]
     Active Substance: DEXMEDETOMIDINE
     Indication: Back pain
  7. FENTANYL [Suspect]
     Active Substance: FENTANYL
     Indication: Neuralgia
     Dosage: UNK
     Route: 065
  8. FENTANYL [Suspect]
     Active Substance: FENTANYL
     Indication: Back pain
  9. KETAMINE [Suspect]
     Active Substance: KETAMINE
     Indication: Neuralgia
     Dosage: UNK
     Route: 065
  10. KETAMINE [Suspect]
     Active Substance: KETAMINE
     Indication: Back pain
  11. MORPHINE [Suspect]
     Active Substance: MORPHINE
     Indication: Neuralgia
     Dosage: 15 MILLIGRAM, QD
     Route: 065
  12. MORPHINE [Suspect]
     Active Substance: MORPHINE
     Indication: Back pain
  13. MORPHINE [Suspect]
     Active Substance: MORPHINE
     Indication: Neuralgia
     Dosage: 2 MILLIGRAM (INTERMITTENT DURING EPISODES OF BREAKTHROUGH PAIN)
     Route: 042
  14. MORPHINE [Suspect]
     Active Substance: MORPHINE
     Indication: Back pain
  15. PROPOFOL [Suspect]
     Active Substance: PROPOFOL
     Indication: Neuralgia
     Dosage: 100 MILLIGRAM, QH (UP TO 100MG/HOUR)
     Route: 065
  16. PROPOFOL [Suspect]
     Active Substance: PROPOFOL
     Indication: Back pain
  17. TRAMADOL [Suspect]
     Active Substance: TRAMADOL
     Indication: Neuralgia
     Dosage: 100 MILLIGRAM, Q8H
     Route: 065
  18. TRAMADOL [Suspect]
     Active Substance: TRAMADOL
     Indication: Back pain
  19. DULOXETINE [Concomitant]
     Active Substance: DULOXETINE
     Indication: Neuralgia
     Dosage: UNK
     Route: 065
  20. RISPERIDONE [Concomitant]
     Active Substance: RISPERIDONE
     Indication: Neuralgia
     Dosage: UNK
     Route: 065
  21. MEROPENEM [Concomitant]
     Active Substance: MEROPENEM
     Indication: Meningitis bacterial
     Dosage: 2 GRAM, Q8H
     Route: 065
  22. METHYLPREDNISOLONE [Concomitant]
     Active Substance: METHYLPREDNISOLONE
     Indication: Meningitis bacterial
     Dosage: 500 MILLIGRAM, QD
     Route: 065

REACTIONS (2)
  - Respiratory depression [Unknown]
  - Altered state of consciousness [Unknown]
